FAERS Safety Report 25994704 (Version 1)
Quarter: 2025Q4

REPORT INFORMATION
  Report Type: Spontaneous
  Country: CN (occurrence: CN)
  Receive Date: 20251104
  Receipt Date: 20251104
  Transmission Date: 20260117
  Serious: Yes (Hospitalization, Other)
  Sender: STRIDES
  Company Number: CN-STRIDES ARCOLAB LIMITED-2025SP013630

PATIENT
  Age: 15 Year
  Sex: Male

DRUGS (12)
  1. URSODIOL [Suspect]
     Active Substance: URSODIOL
     Indication: Progressive familial intrahepatic cholestasis
     Dosage: UNK
     Route: 065
     Dates: start: 2018
  2. URSODIOL [Suspect]
     Active Substance: URSODIOL
     Dosage: UNK
     Route: 065
     Dates: start: 2019
  3. ADEMETIONINE [Suspect]
     Active Substance: ADEMETIONINE
     Indication: Progressive familial intrahepatic cholestasis
     Dosage: UNK
     Route: 065
     Dates: start: 2018
  4. ADEMETIONINE [Suspect]
     Active Substance: ADEMETIONINE
     Dosage: UNK
     Route: 065
     Dates: start: 2019
  5. TREPIBUTONE [Suspect]
     Active Substance: TREPIBUTONE
     Indication: Progressive familial intrahepatic cholestasis
     Dosage: UNK
     Route: 065
     Dates: start: 2018
  6. TREPIBUTONE [Suspect]
     Active Substance: TREPIBUTONE
     Dosage: UNK
     Route: 065
     Dates: start: 2019
  7. SIROLIMUS [Concomitant]
     Active Substance: SIROLIMUS
     Indication: Progressive familial intrahepatic cholestasis
     Dosage: 1 MILLIGRAM, QD
     Route: 065
     Dates: start: 20180721
  8. SIROLIMUS [Concomitant]
     Active Substance: SIROLIMUS
     Dosage: 4 MILLIGRAM, QD
     Route: 065
     Dates: start: 2019
  9. SIROLIMUS [Concomitant]
     Active Substance: SIROLIMUS
     Dosage: 1 MILLIGRAM, QD
     Route: 065
     Dates: start: 2019
  10. SIROLIMUS [Concomitant]
     Active Substance: SIROLIMUS
     Dosage: 0.5 MILLIGRAM, QD
     Route: 065
     Dates: start: 2019
  11. VORICONAZOLE [Concomitant]
     Active Substance: VORICONAZOLE
     Indication: Progressive familial intrahepatic cholestasis
     Dosage: UNK
     Route: 065
  12. AMPHOTERICIN B [Suspect]
     Active Substance: AMPHOTERICIN B
     Indication: Progressive familial intrahepatic cholestasis
     Dosage: UNK
     Route: 065

REACTIONS (2)
  - Condition aggravated [Recovering/Resolving]
  - Off label use [Unknown]

NARRATIVE: CASE EVENT DATE: 20180101
